FAERS Safety Report 7602819-2 (Version None)
Quarter: 2011Q3

REPORT INFORMATION
  Report Type: 
  Country: None (occurrence: None)
  Receive Date: 20110711
  Receipt Date: 20110711
  Transmission Date: 20111222
  Serious: Yes (Hospitalization)
  Sender: FDA-Public Use
  Company Number: None

PATIENT
  Age: 15 Year
  Sex: Female
  Weight: 47 kg

DRUGS (2)
  1. METOCLOPRAMIDE [Suspect]
     Indication: NAUSEA
     Dosage: INJECTION ONCE OFF IM
     Route: 030
     Dates: start: 20110630, end: 20110630
  2. MAXALON T -CODE NP740519018- [Suspect]
     Indication: NAUSEA
     Dosage: TABLETS 12 HOURLY PO
     Route: 048
     Dates: start: 20110630, end: 20110701

REACTIONS (10)
  - ABDOMINAL PAIN UPPER [None]
  - PAIN [None]
  - TREMOR [None]
  - NO THERAPEUTIC RESPONSE [None]
  - MUSCLE SPASMS [None]
  - TRISMUS [None]
  - JOINT DISLOCATION [None]
  - DISCOMFORT [None]
  - FEELING ABNORMAL [None]
  - BRUXISM [None]
